FAERS Safety Report 24002103 (Version 1)
Quarter: 2024Q2

REPORT INFORMATION
  Report Type: Spontaneous
  Country: CO (occurrence: CO)
  Receive Date: 20240622
  Receipt Date: 20240622
  Transmission Date: 20240716
  Serious: Yes (Life-Threatening, Hospitalization, Other)
  Sender: FDA-Public Use
  Company Number: CO-BRISTOL-MYERS SQUIBB COMPANY-2024-097986

PATIENT
  Age: 74 Year
  Sex: Male

DRUGS (3)
  1. IPILIMUMAB [Suspect]
     Active Substance: IPILIMUMAB
     Indication: Transitional cell carcinoma
  2. NIVOLUMAB [Suspect]
     Active Substance: NIVOLUMAB
     Indication: Transitional cell carcinoma
  3. SACITUZUMAB GOVITECAN [Suspect]
     Active Substance: SACITUZUMAB GOVITECAN
     Indication: Transitional cell carcinoma

REACTIONS (9)
  - Myasthenic syndrome [Unknown]
  - Myositis [Unknown]
  - Myocarditis [Unknown]
  - Acute kidney injury [Unknown]
  - Transaminases increased [Unknown]
  - Cardiogenic shock [Unknown]
  - Atrioventricular block complete [Unknown]
  - Myocardial infarction [Unknown]
  - Off label use [Unknown]
